FAERS Safety Report 8411594-3 (Version None)
Quarter: 2012Q2

REPORT INFORMATION
  Report Type: 
  Country: None (occurrence: None)
  Receive Date: 20120531
  Receipt Date: 20120531
  Transmission Date: 20120825
  Serious: Yes (Hospitalization)
  Sender: FDA-Public Use
  Company Number: None

PATIENT
  Sex: Male

DRUGS (3)
  1. VICTRELIS [Suspect]
     Indication: HEPATITIS C
     Dosage: 800 MG TID ORAL
     Route: 048
     Dates: start: 20110820
  2. RIBAVIRIN [Suspect]
     Dosage: 600 MG BID ORAL
     Route: 048
  3. PEGASYS [Suspect]
     Dosage: 180 MCG QW SQ
     Route: 058
     Dates: start: 20120525

REACTIONS (3)
  - PYREXIA [None]
  - DEHYDRATION [None]
  - VOMITING [None]
